FAERS Safety Report 7511926-4 (Version None)
Quarter: 2011Q2

REPORT INFORMATION
  Report Type: 
  Country: None (occurrence: None)
  Receive Date: 20110531
  Receipt Date: 20110523
  Transmission Date: 20111010
  Serious: Yes (Death, Hospitalization, Other)
  Sender: FDA-Public Use
  Company Number: US-SANOFI-AVENTIS-2010SA064251

PATIENT
  Age: 76 Year
  Sex: Male

DRUGS (28)
  1. PHENERGAN HCL [Concomitant]
     Dates: start: 20100511
  2. DOCETAXEL [Suspect]
     Dosage: EVERY 3 WEEKS
     Route: 041
     Dates: start: 20100907, end: 20100907
  3. DOCETAXEL [Suspect]
     Dosage: EVERY 3 WEEKS
     Route: 041
     Dates: start: 20100928, end: 20100928
  4. PREDNISONE [Suspect]
     Indication: PROSTATE CANCER
     Route: 048
     Dates: start: 20100511, end: 20101007
  5. METFORMIN HCL [Concomitant]
     Dates: end: 20100912
  6. COMPAZINE [Concomitant]
     Dates: start: 20100511
  7. ACETAMINOPHEN [Concomitant]
     Dates: start: 20100430
  8. NITROGLYCERIN [Concomitant]
  9. DOCETAXEL [Suspect]
     Indication: PROSTATE CANCER
     Dosage: EVERY 3 WEEKS
     Route: 041
     Dates: start: 20100511, end: 20100511
  10. ZOMETA [Concomitant]
     Dates: start: 20091020
  11. SUCRALFATE [Concomitant]
     Dates: start: 20100829
  12. LUPRON [Concomitant]
     Dates: start: 20081010
  13. MILK OF MAGNESIA TAB [Concomitant]
     Dates: start: 20100511
  14. VITAMIN B-12 [Concomitant]
     Dates: start: 20100622
  15. ASPIRIN [Concomitant]
  16. BLINDED THERAPY [Suspect]
     Indication: PROSTATE CANCER
     Route: 048
     Dates: start: 20100511, end: 20101012
  17. MEVACOR [Concomitant]
     Dates: end: 20100912
  18. LOVASTATIN [Concomitant]
     Dates: start: 20000510
  19. LACTASE [Concomitant]
     Dates: start: 20100617
  20. SIMVASTATIN [Concomitant]
  21. LANTUS [Concomitant]
  22. INSULIN [Concomitant]
  23. LOPERAMIDE [Concomitant]
     Dates: start: 20100518
  24. ASPIRIN [Concomitant]
     Dates: start: 19950510
  25. FISH OIL [Concomitant]
     Dates: start: 20000427
  26. EMLA [Concomitant]
     Dates: start: 20100607
  27. FUROSEMIDE [Concomitant]
  28. METOPROLOL TARTRATE [Concomitant]

REACTIONS (7)
  - AORTIC STENOSIS [None]
  - MYELODYSPLASTIC SYNDROME [None]
  - DISEASE PROGRESSION [None]
  - RECTAL HAEMORRHAGE [None]
  - ANAEMIA [None]
  - GASTROINTESTINAL HAEMORRHAGE [None]
  - CARDIAC FAILURE CONGESTIVE [None]
